FAERS Safety Report 23139883 (Version 2)
Quarter: 2024Q1

REPORT INFORMATION
  Report Type: Report from Study
  Country: US (occurrence: US)
  Receive Date: 20231102
  Receipt Date: 20240318
  Transmission Date: 20240409
  Serious: Yes (Hospitalization)
  Sender: FDA-Public Use
  Company Number: US-BAYER-2023A151533

PATIENT
  Age: 78 Year
  Sex: Male
  Weight: 98.413 kg

DRUGS (14)
  1. ADEMPAS [Suspect]
     Active Substance: RIOCIGUAT
     Indication: Pulmonary arterial hypertension
     Dosage: UNK
     Dates: start: 20221104
  2. ADEMPAS [Suspect]
     Active Substance: RIOCIGUAT
     Indication: Pulmonary arterial hypertension
     Dosage: 1.5 MG, TID
     Route: 048
  3. ATORVASTATIN CALCIUM [Concomitant]
     Active Substance: ATORVASTATIN CALCIUM
  4. VITAMIN D3 [Concomitant]
     Active Substance: CHOLECALCIFEROL
  5. BUMETANIDE [Concomitant]
     Active Substance: BUMETANIDE
  6. ALLOPURINOL [Concomitant]
     Active Substance: ALLOPURINOL
  7. ASPIRIN [Concomitant]
     Active Substance: ASPIRIN
  8. ALBUTEROL SULFATE [Concomitant]
     Active Substance: ALBUTEROL SULFATE
  9. GLIPIZIDE [Concomitant]
     Active Substance: GLIPIZIDE
  10. ASCORBIC ACID [Concomitant]
     Active Substance: ASCORBIC ACID
  11. OXYGEN [Concomitant]
     Active Substance: OXYGEN
  12. LOSARTAN [Concomitant]
     Active Substance: LOSARTAN
  13. POTASSIUM [Concomitant]
     Active Substance: POTASSIUM
  14. FERROUS SULFATE [Concomitant]
     Active Substance: FERROUS SULFATE

REACTIONS (8)
  - Fall [None]
  - Gait inability [Not Recovered/Not Resolved]
  - Fluid retention [Not Recovered/Not Resolved]
  - Arthralgia [None]
  - Joint swelling [None]
  - Peripheral swelling [Not Recovered/Not Resolved]
  - Weight increased [None]
  - Condition aggravated [None]
